FAERS Safety Report 17035466 (Version 1)
Quarter: 2019Q4

REPORT INFORMATION
  Report Type: Spontaneous
  Country: GB (occurrence: GB)
  Receive Date: 20191115
  Receipt Date: 20191115
  Transmission Date: 20200122
  Serious: Yes (Other)
  Sender: FDA-Public Use
  Company Number: GB-TEVA-2019-GB-1137324

PATIENT
  Age: 46 Year
  Sex: Female

DRUGS (4)
  1. METRONIDAZOLE. [Suspect]
     Active Substance: METRONIDAZOLE
     Indication: TUBO-OVARIAN ABSCESS
     Dosage: 1500 MG 1 DAYS
     Route: 042
     Dates: start: 20171202, end: 20171203
  2. DOXYCYCLINE. [Concomitant]
     Active Substance: DOXYCYCLINE
  3. CEFTRIAXONE. [Concomitant]
     Active Substance: CEFTRIAXONE
  4. TRIMETHOPRIM. [Concomitant]
     Active Substance: TRIMETHOPRIM

REACTIONS (4)
  - Hallucination, visual [Unknown]
  - Agitation [Unknown]
  - Paraesthesia oral [Unknown]
  - Restlessness [Unknown]

NARRATIVE: CASE EVENT DATE: 20171203
